FAERS Safety Report 5596704-8 (Version None)
Quarter: 2008Q1

REPORT INFORMATION
  Report Type: 
  Country: None (occurrence: None)
  Receive Date: 20080118
  Receipt Date: 20080107
  Transmission Date: 20080703
  Serious: Yes (Other)
  Sender: FDA-Public Use
  Company Number: FR-PFIZER INC-2008002480

PATIENT
  Age: 38 Year
  Sex: Male

DRUGS (5)
  1. LYRICA [Suspect]
     Indication: DYSAESTHESIA
     Dates: start: 20071022, end: 20080104
  2. NEURONTIN [Suspect]
     Indication: DYSAESTHESIA
  3. TEGRETOL [Suspect]
     Indication: DYSAESTHESIA
  4. LAROXYL [Suspect]
     Indication: DYSAESTHESIA
  5. POLERY [Concomitant]
     Indication: COUGH

REACTIONS (4)
  - DRUG INEFFECTIVE [None]
  - DYSKINESIA [None]
  - IRRITABILITY [None]
  - SPEECH DISORDER [None]
